FAERS Safety Report 16385233 (Version 1)
Quarter: 2019Q2

REPORT INFORMATION
  Report Type: Spontaneous
  Country: US (occurrence: US)
  Receive Date: 20190603
  Receipt Date: 20190603
  Transmission Date: 20190711
  Serious: No
  Sender: FDA-Public Use
  Company Number: US-MYLANLABS-2019M1049770

PATIENT
  Age: 40 Year
  Sex: Female
  Weight: 66 kg

DRUGS (2)
  1. WELLBUTRIN [Concomitant]
     Active Substance: BUPROPION HYDROCHLORIDE
     Dosage: 150 TWICE A DAY
  2. ESTRADIOL TRANSDERMAL SYSTEM [Suspect]
     Active Substance: ESTRADIOL
     Indication: HYSTERECTOMY
     Dosage: UNK
     Route: 062
     Dates: start: 20190418

REACTIONS (2)
  - Rash [Not Recovered/Not Resolved]
  - Application site erythema [Unknown]

NARRATIVE: CASE EVENT DATE: 2019
